FAERS Safety Report 11321729 (Version 1)
Quarter: 2015Q3

REPORT INFORMATION
  Report Type: Spontaneous
  Country: GB (occurrence: GB)
  Receive Date: 20150729
  Receipt Date: 20150729
  Transmission Date: 20151125
  Serious: Yes (Other)
  Sender: FDA-Public Use
  Company Number: GB-COREPHARMA LLC-2015COR00148

PATIENT

DRUGS (2)
  1. UNSPECIFIED ANTIEPILEPTIC DRUG(S) [Concomitant]
     Indication: EPILEPSY
  2. PHENYTOIN. [Suspect]
     Active Substance: PHENYTOIN
     Indication: EPILEPSY

REACTIONS (3)
  - Epilepsy [Unknown]
  - Dystonia [Unknown]
  - Aggression [Unknown]
